FAERS Safety Report 8250913-8 (Version None)
Quarter: 2012Q1

REPORT INFORMATION
  Report Type: 
  Country: None (occurrence: None)
  Receive Date: 20120328
  Receipt Date: 20120316
  Transmission Date: 20120608
  Serious: Yes (Congenital Anomaly)
  Sender: FDA-Public Use
  Company Number: ADR-UNK-033

PATIENT
  Age: 259 Day

DRUGS (4)
  1. FUZEON [Concomitant]
  2. RALTEGRAVIR (INSENTRESS, RAL) [Concomitant]
  3. ZIDOVUDINE GENERIC - ROXANE/BI [Concomitant]
  4. LAMIVUDINE/ZIDOVUDINE [Suspect]
     Indication: ACQUIRED IMMUNODEFICIENCY SYNDROME
     Dosage: COURSE/DAY

REACTIONS (2)
  - FOETAL EXPOSURE DURING PREGNANCY [None]
  - PLAGIOCEPHALY [None]
